FAERS Safety Report 14122528 (Version 8)
Quarter: 2018Q2

REPORT INFORMATION
  Report Type: Report from Study
  Country: US (occurrence: US)
  Receive Date: 20171024
  Receipt Date: 20180525
  Transmission Date: 20180711
  Serious: Yes (Hospitalization, Other)
  Sender: FDA-Public Use
  Company Number: US-ACTELION-A-NJ2017-149572

PATIENT
  Age: 70 Year
  Sex: Female
  Weight: 84.35 kg

DRUGS (7)
  1. REMODULIN [Concomitant]
     Active Substance: TREPROSTINIL
     Dosage: UNK
  2. TRACLEER [Suspect]
     Active Substance: BOSENTAN
     Indication: PULMONARY ARTERIAL HYPERTENSION
     Dosage: 125 MG, BID
     Route: 048
     Dates: start: 20150602
  3. TRACLEER [Interacting]
     Active Substance: BOSENTAN
     Dosage: 125 MG, BID
     Route: 048
  4. TYVASO [Suspect]
     Active Substance: TREPROSTINIL
     Dosage: 18-72 MCGS, QID
     Route: 055
     Dates: start: 20140311
  5. DIFLUCAN [Interacting]
     Active Substance: FLUCONAZOLE
     Indication: FUNGAL INFECTION
     Route: 065
  6. TYVASO [Suspect]
     Active Substance: TREPROSTINIL
     Indication: PULMONARY HYPERTENSION
     Dosage: 48NG/KG/MIN
     Route: 042
  7. REMODULIN [Concomitant]
     Active Substance: TREPROSTINIL
     Dosage: 38 NG/KG, PER MIN
     Dates: start: 201708

REACTIONS (46)
  - Intervertebral disc protrusion [Not Recovered/Not Resolved]
  - Catheter site discharge [Unknown]
  - Anxiety [Unknown]
  - Pain in extremity [Unknown]
  - Walking aid user [Unknown]
  - Spinal fracture [Unknown]
  - Resuscitation [Unknown]
  - Nasal congestion [Unknown]
  - Cardiomegaly [Not Recovered/Not Resolved]
  - Back pain [Not Recovered/Not Resolved]
  - Drug interaction [Unknown]
  - Rash macular [Unknown]
  - Burning sensation [Unknown]
  - Cardiac pacemaker insertion [Unknown]
  - Syncope [Unknown]
  - Skin discolouration [Unknown]
  - Contusion [Unknown]
  - Feeling abnormal [Unknown]
  - Diet noncompliance [Unknown]
  - Drug dose omission [Unknown]
  - Dehydration [Unknown]
  - Dyspnoea [Unknown]
  - Impaired quality of life [Unknown]
  - Anaemia [Unknown]
  - Presyncope [Unknown]
  - Abdominal pain [Unknown]
  - Nausea [Unknown]
  - Myalgia [Unknown]
  - Fungal infection [Unknown]
  - Urinary tract infection [Unknown]
  - Asthenia [Unknown]
  - Device related infection [Unknown]
  - Back injury [Unknown]
  - Loss of consciousness [Unknown]
  - Malaise [Unknown]
  - Flatulence [Unknown]
  - Nasopharyngitis [Unknown]
  - Sleep study abnormal [Unknown]
  - Pruritus [Unknown]
  - Condition aggravated [Unknown]
  - Peripheral swelling [Unknown]
  - Fall [Unknown]
  - Abdominal discomfort [Unknown]
  - Diarrhoea [Unknown]
  - Paraesthesia [Unknown]
  - Unevaluable event [Unknown]

NARRATIVE: CASE EVENT DATE: 201701
